FAERS Safety Report 15979206 (Version 1)
Quarter: 2019Q1

REPORT INFORMATION
  Report Type: Spontaneous
  Country: US (occurrence: US)
  Receive Date: 20190216
  Receipt Date: 20190216
  Transmission Date: 20190418
  Serious: Yes (Other)
  Sender: FDA-Public Use
  Company Number: None

PATIENT
  Age: 36 Year
  Sex: Female
  Weight: 91.8 kg

DRUGS (12)
  1. RISPERDAL [Concomitant]
     Active Substance: RISPERIDONE
  2. OMEPRAZOL [Concomitant]
     Active Substance: OMEPRAZOLE
  3. VIVITROL [Suspect]
     Active Substance: NALTREXONE
     Indication: DRUG DEPENDENCE
     Dosage: ?          QUANTITY:1 INJECTION(S);OTHER FREQUENCY:ONCE A MONTH;?
     Route: 030
  4. PHENTERMINE. [Concomitant]
     Active Substance: PHENTERMINE
  5. TRI-SPRINTED [Concomitant]
  6. WOMEN^S MULTI-VITAMIN [Concomitant]
  7. EFFEXAR XR [Concomitant]
  8. VIVITROL [Suspect]
     Active Substance: NALTREXONE
     Indication: ALCOHOLISM
     Dosage: ?          QUANTITY:1 INJECTION(S);OTHER FREQUENCY:ONCE A MONTH;?
     Route: 030
  9. KLONOPIN [Concomitant]
     Active Substance: CLONAZEPAM
  10. VALTREX [Concomitant]
     Active Substance: VALACYCLOVIR HYDROCHLORIDE
  11. BIOASTIN [Concomitant]
  12. SPIRULINA [Concomitant]
     Active Substance: SPIRULINA

REACTIONS (3)
  - Weight increased [None]
  - Menstruation irregular [None]
  - Amenorrhoea [None]

NARRATIVE: CASE EVENT DATE: 20181030
